FAERS Safety Report 20674208 (Version 1)
Quarter: 2022Q2

REPORT INFORMATION
  Report Type: Spontaneous
  Country: US (occurrence: None)
  Receive Date: 20220404
  Receipt Date: 20220404
  Transmission Date: 20220721
  Serious: No
  Sender: FDA-Public Use
  Company Number: None

PATIENT
  Age: 74 Year
  Sex: Female
  Weight: 56 kg

DRUGS (1)
  1. RETEVMO [Suspect]
     Active Substance: SELPERCATINIB

REACTIONS (2)
  - Alopecia [None]
  - Decreased appetite [None]

NARRATIVE: CASE EVENT DATE: 20220404
